FAERS Safety Report 12968886 (Version 1)
Quarter: 2016Q4

REPORT INFORMATION
  Report Type: Spontaneous
  Country: US (occurrence: US)
  Receive Date: 20161123
  Receipt Date: 20161123
  Transmission Date: 20170207
  Serious: Yes (Other)
  Sender: FDA-Public Use
  Company Number: US-BAYER-2016-221789

PATIENT
  Age: 59 Year
  Sex: Male

DRUGS (1)
  1. ACETYLSALICYLIC ACID({=100 MG) [Suspect]
     Active Substance: ASPIRIN
     Indication: MITRAL VALVE PROLAPSE
     Dosage: UNK

REACTIONS (5)
  - Dizziness [None]
  - Paranoia [None]
  - Abnormal behaviour [None]
  - Anxiety [None]
  - Cerebral artery embolism [None]
